FAERS Safety Report 8416207-2 (Version None)
Quarter: 2012Q2

REPORT INFORMATION
  Report Type: 
  Country: None (occurrence: None)
  Receive Date: 20120606
  Receipt Date: 20120601
  Transmission Date: 20120825
  Serious: No
  Sender: FDA-Public Use
  Company Number: US-PFIZER INC-2012132737

PATIENT
  Sex: Female
  Weight: 68.027 kg

DRUGS (2)
  1. CHANTIX [Suspect]
     Indication: SMOKING CESSATION THERAPY
     Dosage: 0.5 MG, DAILY
     Route: 048
     Dates: start: 20120531
  2. EFFEXOR XR [Suspect]
     Indication: ANXIETY
     Dosage: 75 MG, DAILY
     Dates: start: 20120101, end: 20120101

REACTIONS (2)
  - EUPHORIC MOOD [None]
  - ANXIETY [None]
